FAERS Safety Report 12633715 (Version 1)
Quarter: 2016Q3

REPORT INFORMATION
  Report Type: Spontaneous
  Country: US (occurrence: None)
  Receive Date: 20160808
  Receipt Date: 20160808
  Transmission Date: 20161109
  Serious: Yes (Disabling)
  Sender: FDA-Public Use
  Company Number: None

PATIENT
  Age: 78 Year
  Sex: Female
  Weight: 74.84 kg

DRUGS (4)
  1. VITAMIN D [Concomitant]
     Active Substance: CHOLECALCIFEROL
  2. ELIQUIS [Concomitant]
     Active Substance: APIXABAN
  3. METOPROLOL. [Concomitant]
     Active Substance: METOPROLOL
  4. LIDOCAINE PATCH 5% MYLAN PHARMACEUTICA LS INC. [Suspect]
     Active Substance: LIDOCAINE
     Indication: BACK PAIN
     Dosage: 140MG 1 PATCH ONCE FOR 12 HRS MAXIMUM APPLY TO PAINFUL AREA (ON BACK)
     Route: 061
     Dates: start: 201604

REACTIONS (2)
  - Product substitution issue [None]
  - Drug ineffective [None]

NARRATIVE: CASE EVENT DATE: 20160410
